FAERS Safety Report 20931916 (Version 4)
Quarter: 2022Q3

REPORT INFORMATION
  Report Type: Report from Study
  Country: TN (occurrence: None)
  Receive Date: 20220608
  Receipt Date: 20220720
  Transmission Date: 20221027
  Serious: Yes (Other)
  Sender: FDA-Public Use
  Company Number: TN-Merck Healthcare KGaA-9326646

PATIENT
  Age: 44 Year
  Sex: Female

DRUGS (1)
  1. REBIF [Suspect]
     Active Substance: INTERFERON BETA-1A
     Indication: Multiple sclerosis
     Route: 058
     Dates: start: 20201221

REACTIONS (4)
  - Ovarian cyst [Unknown]
  - Mouth haemorrhage [Unknown]
  - Vaginal haemorrhage [Unknown]
  - Internal haemorrhage [Recovering/Resolving]

NARRATIVE: CASE EVENT DATE: 20220401
